FAERS Safety Report 4611467-8 (Version None)
Quarter: 2005Q1

REPORT INFORMATION
  Report Type: 
  Country: None (occurrence: None)
  Receive Date: 20050317
  Receipt Date: 20050223
  Transmission Date: 20050727
  Serious: Yes (Hospitalization)
  Sender: FDA-Public Use
  Company Number: FR-BRISTOL-MYERS SQUIBB COMPANY-12876397

PATIENT
  Age: 88 Year
  Sex: Male
  Weight: 60 kg

DRUGS (6)
  1. LOPRIL TABS 25 MG [Suspect]
     Route: 048
     Dates: end: 20050101
  2. KARDEGIC [Suspect]
     Dates: end: 20050101
  3. BURINEX [Suspect]
  4. OMEPRAZOLE [Suspect]
  5. METOPROLOL SUCCINATE [Suspect]
  6. RULID [Suspect]
     Indication: NASOPHARYNGITIS
     Dates: start: 20050110, end: 20050115

REACTIONS (5)
  - CONJUNCTIVAL HAEMORRHAGE [None]
  - ECCHYMOSIS [None]
  - HAEMATOMA [None]
  - PETECHIAE [None]
  - THROMBOCYTOPENIA [None]
